FAERS Safety Report 8611148-X (Version None)
Quarter: 2012Q3

REPORT INFORMATION
  Report Type: 
  Country: None (occurrence: None)
  Receive Date: 20120806
  Receipt Date: 20120724
  Transmission Date: 20120928
  Serious: Yes (Death)
  Sender: FDA-Public Use
  Company Number: DSA_58745_2012

PATIENT
  Sex: Male

DRUGS (3)
  1. CLARITIN [Concomitant]
  2. MULTI-VITAMIN [Concomitant]
  3. BUPROPION HYDROCHLORIDE [Suspect]
     Indication: SMOKING CESSATION THERAPY
     Dosage: 150 MG BID ORAL
     Route: 048
     Dates: start: 20120627

REACTIONS (1)
  - ABDOMINAL PAIN LOWER [None]
